FAERS Safety Report 5400432-9 (Version None)
Quarter: 2007Q3

REPORT INFORMATION
  Report Type: 
  Country: None (occurrence: None)
  Receive Date: 20070730
  Receipt Date: 20070723
  Transmission Date: 20080115
  Serious: Yes (Hospitalization)
  Sender: FDA-Public Use
  Company Number: B0480905A

PATIENT
  Sex: Male

DRUGS (1)
  1. VALTREX [Suspect]
     Route: 065

REACTIONS (1)
  - FEELING DRUNK [None]
